FAERS Safety Report 9559482 (Version 3)
Quarter: 2013Q4

REPORT INFORMATION
  Report Type: Spontaneous
  Country: US (occurrence: US)
  Receive Date: 20130927
  Receipt Date: 20131205
  Transmission Date: 20140711
  Serious: Yes (Hospitalization)
  Sender: FDA-Public Use
  Company Number: US-JNJFOC-20130911483

PATIENT
  Age: 72 Year
  Sex: Male
  Weight: 93.44 kg

DRUGS (16)
  1. XARELTO [Suspect]
     Indication: CEREBROVASCULAR ACCIDENT PROPHYLAXIS
     Route: 048
     Dates: start: 20121101, end: 20131113
  2. XARELTO [Suspect]
     Indication: ATRIAL FIBRILLATION
     Route: 048
     Dates: start: 20121101, end: 20131113
  3. CARVEDILOL [Concomitant]
     Indication: CARDIAC DISORDER
     Dosage: 1 DOSE IN AM AND 1.2 DOSE IN PM
     Route: 048
     Dates: start: 2011
  4. SIMVASTATIN [Concomitant]
     Indication: CARDIAC DISORDER
     Route: 048
     Dates: start: 2011
  5. LISINOPRIL [Concomitant]
     Indication: BLOOD PRESSURE
     Route: 048
     Dates: start: 2011
  6. ONE A DAY MULTIVITAMIN [Concomitant]
     Route: 065
  7. ASPIRIN [Concomitant]
     Indication: PRODUCT USED FOR UNKNOWN INDICATION
     Route: 065
  8. SPIRONOLACTONE [Concomitant]
     Indication: PRODUCT USED FOR UNKNOWN INDICATION
     Dosage: 1/2 DAILY
     Route: 065
  9. LASIX [Concomitant]
     Indication: PRODUCT USED FOR UNKNOWN INDICATION
     Route: 065
  10. KLOR-CON [Concomitant]
     Indication: PRODUCT USED FOR UNKNOWN INDICATION
     Route: 065
  11. PREDNISONE [Concomitant]
     Indication: PRODUCT USED FOR UNKNOWN INDICATION
     Dosage: AS NEEDED
     Route: 065
  12. GABAPENTIN [Concomitant]
     Indication: PRODUCT USED FOR UNKNOWN INDICATION
     Route: 065
  13. HYDROCODONE ACETAMINOPHEN [Concomitant]
     Indication: PRODUCT USED FOR UNKNOWN INDICATION
     Dosage: AS NEEDED
     Route: 065
  14. TIZANIDINE [Concomitant]
     Indication: PRODUCT USED FOR UNKNOWN INDICATION
     Dosage: AS NEEDED
     Route: 065
  15. CYCLOBENZAPRINE [Concomitant]
     Indication: PRODUCT USED FOR UNKNOWN INDICATION
     Dosage: AS NEEDED
     Route: 065
  16. TRAZODONE [Concomitant]
     Indication: PRODUCT USED FOR UNKNOWN INDICATION
     Dosage: 1/2 AS NEEDED
     Route: 065

REACTIONS (8)
  - Transient ischaemic attack [Recovered/Resolved]
  - Feeling abnormal [Recovered/Resolved]
  - Spinal fusion surgery [Unknown]
  - Haematuria [Recovered/Resolved]
  - Muscle spasms [Not Recovered/Not Resolved]
  - Sciatica [Not Recovered/Not Resolved]
  - Calcinosis [Not Recovered/Not Resolved]
  - Treatment noncompliance [Unknown]
